FAERS Safety Report 6921696-6 (Version None)
Quarter: 2010Q3

REPORT INFORMATION
  Report Type: 
  Country: None (occurrence: None)
  Receive Date: 20100812
  Receipt Date: 20100809
  Transmission Date: 20110219
  Serious: Yes (Death, Hospitalization)
  Sender: FDA-Public Use
  Company Number: US-SHIRE-ALL1-2010-04194

PATIENT

DRUGS (2)
  1. FOSRENOL [Suspect]
     Indication: HYPERPHOSPHATAEMIA
     Dosage: UNK MG, 1X/DAY:QD
     Route: 048
  2. FOSRENOL [Suspect]
     Indication: DIALYSIS

REACTIONS (2)
  - BLOOD POTASSIUM INCREASED [None]
  - DEATH [None]
